FAERS Safety Report 24751180 (Version 1)
Quarter: 2024Q4

REPORT INFORMATION
  Report Type: Spontaneous
  Country: FR (occurrence: FR)
  Receive Date: 20241219
  Receipt Date: 20241219
  Transmission Date: 20250115
  Serious: Yes (Hospitalization)
  Sender: TEVA
  Company Number: None

PATIENT
  Age: 19 Year
  Sex: Male
  Weight: 105 kg

DRUGS (2)
  1. CLOZAPINE [Suspect]
     Active Substance: CLOZAPINE
     Indication: Autism spectrum disorder
     Dosage: 100 MG PER DAY
     Route: 048
     Dates: end: 20241017
  2. ARIPIPRAZOLE [Suspect]
     Active Substance: ARIPIPRAZOLE
     Indication: Autism spectrum disorder
     Dosage: 15 MG PER DAY
     Route: 048
     Dates: start: 20241018, end: 20241024

REACTIONS (9)
  - Disorientation [Recovering/Resolving]
  - Insomnia [Recovered/Resolved]
  - Agitation [Recovered/Resolved]
  - Confusional state [Recovering/Resolving]
  - Asthenia [Recovered/Resolved]
  - Somnolence [Recovered/Resolved]
  - Psychomotor skills impaired [Recovering/Resolving]
  - Tremor [Recovering/Resolving]
  - Vomiting [Recovered/Resolved]

NARRATIVE: CASE EVENT DATE: 20241019
